FAERS Safety Report 6580772-0 (Version None)
Quarter: 2010Q1

REPORT INFORMATION
  Report Type: 
  Country: None (occurrence: None)
  Receive Date: 20100213
  Receipt Date: 20100201
  Transmission Date: 20100710
  Serious: Yes (Hospitalization)
  Sender: FDA-Public Use
  Company Number: US-ELI_LILLY_AND_COMPANY-US201002000187

PATIENT
  Sex: Female
  Weight: 77.098 kg

DRUGS (3)
  1. BYETTA [Suspect]
     Indication: TYPE 2 DIABETES MELLITUS
     Dosage: 5 UG, 2/D
     Route: 058
     Dates: start: 20050101
  2. BYETTA [Suspect]
     Dosage: 10 UG, 2/D
     Route: 058
  3. GLIMEPIRIDE [Concomitant]
     Dosage: 1 MG, UNK

REACTIONS (14)
  - BLOOD CALCIUM INCREASED [None]
  - BLOOD GLUCOSE DECREASED [None]
  - BLOOD GLUCOSE INCREASED [None]
  - BONE DENSITY ABNORMAL [None]
  - CALCULUS URETHRAL [None]
  - DISORIENTATION [None]
  - DRUG INEFFECTIVE [None]
  - HYPERHIDROSIS [None]
  - HYPERPARATHYROIDISM [None]
  - NEPHRECTOMY [None]
  - NEPHROLITHIASIS [None]
  - PAIN [None]
  - PRODUCT QUALITY ISSUE [None]
  - RENAL IMPAIRMENT [None]
